FAERS Safety Report 8522221 (Version 3)
Quarter: 2013Q4

REPORT INFORMATION
  Report Type: Spontaneous
  Country: JP (occurrence: JP)
  Receive Date: 20120419
  Receipt Date: 20131106
  Transmission Date: 20140711
  Serious: Yes (Death)
  Sender: FDA-Public Use
  Company Number: JP-009507513-1204USA02306

PATIENT
  Age: 79 Year
  Sex: Male

DRUGS (29)
  1. JANUVIA [Suspect]
     Indication: DIABETES MELLITUS
     Dosage: 50 MG, QD
     Route: 048
     Dates: start: 20120402, end: 20120410
  2. BAYASPIRIN [Concomitant]
     Dosage: 100 MG, QD
     Route: 048
  3. BAYASPIRIN [Concomitant]
     Route: 048
  4. PLAVIX [Concomitant]
     Dosage: 75 MG, QD
     Route: 048
  5. PLAVIX [Concomitant]
  6. TAKEPRON [Concomitant]
     Dosage: 15 MG, QD
     Route: 048
  7. TAKEPRON [Concomitant]
  8. MAINTATE [Concomitant]
     Dosage: 2.5 MG, QD
     Route: 048
  9. MAINTATE [Concomitant]
  10. AMARYL [Concomitant]
     Dosage: 1 MG, QD
     Route: 048
  11. AMARYL [Concomitant]
  12. SEROQUEL [Concomitant]
     Dosage: 25 MG, QD
     Route: 048
  13. SEROQUEL [Concomitant]
  14. WARFARIN [Concomitant]
     Dosage: 3 MG, QD
     Route: 048
  15. WARFARIN [Concomitant]
  16. PURSENNID (SENNOSIDES) [Concomitant]
     Dosage: 24 MG, QD
     Route: 048
  17. METHYCOBAL [Concomitant]
     Dosage: 500 ?G, TID
     Route: 048
  18. MERISLON [Concomitant]
     Dosage: 6 MG, TID
     Route: 048
  19. ALDACTONE A [Concomitant]
     Dosage: 25 MG, QD
     Route: 048
  20. ALDACTONE A [Concomitant]
  21. BASEN OD [Concomitant]
     Dosage: 0.3 MG, TID
     Route: 048
     Dates: start: 20120320
  22. MK-0805 [Concomitant]
     Dosage: 40 MG, QD
     Route: 048
     Dates: start: 20120320
  23. ADALAT [Concomitant]
     Indication: BLOOD PRESSURE INCREASED
     Dosage: 10 MG, UNK
     Route: 048
  24. ADALAT [Concomitant]
     Dosage: ADMINISTERING AT BLOOD PRESSURE ELEVATION
     Route: 048
  25. GEBEN [Concomitant]
     Dosage: UNK UNK, PRN
     Route: 061
  26. GEBEN [Concomitant]
     Dosage: DAILY DOSAGE UNKNOWN
     Route: 061
  27. JANUVIA TABLETS 50MG [Suspect]
     Indication: DIABETES MELLITUS
     Route: 048
     Dates: start: 20120402, end: 20120410
  28. PURSENNID (SENNA) [Concomitant]
     Dosage: BEFORE IT SLEEPS
     Route: 048
  29. FUROSEMIDE [Concomitant]
     Route: 048
     Dates: start: 20120320

REACTIONS (1)
  - Interstitial lung disease [Fatal]
